FAERS Safety Report 4649950-1 (Version None)
Quarter: 2005Q2

REPORT INFORMATION
  Report Type: 
  Country: None (occurrence: None)
  Receive Date: 20050502
  Receipt Date: 20050309
  Transmission Date: 20051028
  Serious: Yes (Life-Threatening, Hospitalization, Other)
  Sender: FDA-Public Use
  Company Number: JP-MERCK-0503USA01664

PATIENT
  Age: 82 Year
  Sex: Female
  Weight: 40 kg

DRUGS (9)
  1. PRIMAXIN [Suspect]
     Indication: PNEUMONIA
     Route: 042
     Dates: start: 20050225, end: 20050304
  2. CALBLOCK [Concomitant]
     Indication: HYPERTENSION
     Route: 048
     Dates: start: 20050223
  3. CLARITHROMYCIN [Concomitant]
     Indication: ATYPICAL MYCOBACTERIAL INFECTION
     Route: 048
     Dates: start: 20050223
  4. LENDORM [Suspect]
     Indication: INSOMNIA
     Route: 048
     Dates: start: 20050223
  5. ROHYPNOL [Suspect]
     Indication: INSOMNIA
     Route: 048
     Dates: start: 20050223, end: 20050304
  6. MUCOSOLVAN [Concomitant]
     Route: 048
     Dates: start: 20050223, end: 20050304
  7. HUSTAZOL [Concomitant]
     Route: 048
     Dates: start: 20050223, end: 20050304
  8. TAMIFLU [Concomitant]
     Indication: INFLUENZA
     Route: 048
     Dates: start: 20050223, end: 20050227
  9. PENTCILLIN [Concomitant]
     Indication: PNEUMONIA
     Route: 042
     Dates: start: 20050223, end: 20050225

REACTIONS (6)
  - BLOOD POTASSIUM DECREASED [None]
  - BLOOD UREA INCREASED [None]
  - CONVULSION [None]
  - HYPONATRAEMIA [None]
  - LOSS OF CONSCIOUSNESS [None]
  - RESPIRATORY DEPRESSION [None]
